FAERS Safety Report 21506469 (Version 2)
Quarter: 2022Q4

REPORT INFORMATION
  Report Type: Spontaneous
  Country: US (occurrence: US)
  Receive Date: 20221026
  Receipt Date: 20221122
  Transmission Date: 20230112
  Serious: No
  Sender: FDA-Public Use
  Company Number: US-JNJFOC-20221033531

PATIENT
  Age: 3 Year
  Sex: Female

DRUGS (1)
  1. CHILDRENS MOTRIN [Suspect]
     Active Substance: IBUPROFEN
     Indication: Accidental exposure to product by child
     Route: 048
     Dates: start: 20221017

REACTIONS (2)
  - Accidental exposure to product by child [Unknown]
  - Failure of child resistant product closure [Unknown]

NARRATIVE: CASE EVENT DATE: 20221017
